FAERS Safety Report 9909687 (Version 1)
Quarter: 2014Q1

REPORT INFORMATION
  Report Type: Spontaneous
  Country: GB (occurrence: GB)
  Receive Date: 20140219
  Receipt Date: 20140219
  Transmission Date: 20141002
  Serious: Yes (Disabling)
  Sender: FDA-Public Use
  Company Number: GB-WATSON-2014-02510

PATIENT
  Age: 35 Year
  Sex: Male
  Weight: 55 kg

DRUGS (6)
  1. LAMOTRIGINE (UNKNOWN) [Suspect]
     Indication: AFFECTIVE DISORDER
     Dosage: 125 MG, UNKNOWN - IN DIVIDED DOSES.
     Route: 048
     Dates: start: 20131220, end: 20140120
  2. QUETIAPINE [Concomitant]
     Indication: AFFECTIVE DISORDER
     Dosage: 550 MG, UNKNOWN
     Route: 048
     Dates: start: 201312
  3. BISOPROLOL [Concomitant]
     Indication: TACHYCARDIA
     Dosage: 2.5 MG, UNKNOWN
     Route: 048
     Dates: start: 2011
  4. OMEPRAZOLE [Concomitant]
     Indication: GASTRIC PH DECREASED
     Dosage: 20 MG, UNKNOWN
     Route: 048
     Dates: start: 2011
  5. DIAZEPAM [Concomitant]
     Indication: AGITATION
     Dosage: 10 MG, UNKNOWN
     Route: 048
     Dates: start: 2011
  6. LITHIUM CARBONATE [Concomitant]
     Indication: AFFECTIVE DISORDER
     Dosage: 900 MG, UNKNOWN
     Route: 048
     Dates: start: 2009

REACTIONS (5)
  - Paranoia [Recovered/Resolved]
  - Agitation [Recovered/Resolved]
  - Tachycardia [Recovered/Resolved]
  - Stomatitis [Recovered/Resolved]
  - Rash [Recovered/Resolved]
